FAERS Safety Report 17721646 (Version 2)
Quarter: 2020Q3

REPORT INFORMATION
  Report Type: Spontaneous
  Country: US (occurrence: US)
  Receive Date: 20200429
  Receipt Date: 20200819
  Transmission Date: 20201102
  Serious: Yes (Life-Threatening, Hospitalization, Other)
  Sender: FDA-Public Use
  Company Number: US-DRREDDYS-USA/USA/20/0122432

PATIENT
  Age: 76 Year
  Sex: Female

DRUGS (3)
  1. DULOXETINE. [Suspect]
     Active Substance: DULOXETINE
     Indication: PRODUCT USED FOR UNKNOWN INDICATION
     Dosage: OVER 100 PILLS AT ABOUT 06:00,A MIX OF EXTENDED RELEASE METOPROLOL 50MG TABLETS, DULOXETINE 60MG TAB
     Route: 048
  2. METOPROLOL SUCCINATE. [Suspect]
     Active Substance: METOPROLOL SUCCINATE
     Indication: PRODUCT USED FOR UNKNOWN INDICATION
     Dosage: OVER 100 PILLS AT ABOUT 06:00, A MIX OF EXTENDED RELEASE METOPROLOL 50MG TABLETS, DULOXETINE 60MG TA
     Route: 048
  3. LOSARTAN. [Suspect]
     Active Substance: LOSARTAN
     Indication: PRODUCT USED FOR UNKNOWN INDICATION
     Dosage: OVER 100 PILLS AT ABOUT 06:00, A MIX OF EXTENDED RELEASE METOPROLOL 50MG TABLETS, DULOXETINE 60MG TA
     Route: 048

REACTIONS (5)
  - Depressed level of consciousness [Unknown]
  - Hypotension [Unknown]
  - Hypothermia [Unknown]
  - Bradycardia [Unknown]
  - Intentional overdose [Unknown]
